FAERS Safety Report 8790749 (Version 1)
Quarter: 2012Q4

REPORT INFORMATION
  Report Type: Spontaneous
  Country: US (occurrence: None)
  Receive Date: 20120913
  Receipt Date: 20120913
  Transmission Date: 20130627
  Serious: Yes (Death)
  Sender: FDA-Public Use
  Company Number: None

PATIENT
  Age: 45 Year
  Weight: 73 kg

DRUGS (11)
  1. NAVELBINE [Suspect]
     Indication: BREAST CANCER
  2. HERCEPTIN [Suspect]
  3. CLONAZEPAM [Concomitant]
  4. FLUVOXAMINE [Concomitant]
  5. PREDNISONE [Concomitant]
  6. PLAQUENIL [Concomitant]
  7. OXYCODONE [Concomitant]
  8. PANTOPRAZOLE [Concomitant]
  9. AMBIEN [Concomitant]
  10. LORAZEPAM [Concomitant]
  11. MIRALAX [Concomitant]

REACTIONS (7)
  - Liver function test abnormal [None]
  - Pulmonary embolism [None]
  - Back pain [None]
  - International normalised ratio increased [None]
  - Fatigue [None]
  - Asthenia [None]
  - Confusional state [None]
